FAERS Safety Report 5048904-3 (Version None)
Quarter: 2006Q3

REPORT INFORMATION
  Report Type: 
  Country: None (occurrence: None)
  Receive Date: 20060712
  Receipt Date: 20050802
  Transmission Date: 20061208
  Serious: No
  Sender: FDA-Public Use
  Company Number: US-GLAXOSMITHKLINE-A0568848A

PATIENT
  Age: 57 Year
  Sex: Female

DRUGS (2)
  1. IMITREX [Suspect]
     Indication: DRUG USE FOR UNKNOWN INDICATION
     Route: 048
  2. NEURONTIN [Concomitant]

REACTIONS (1)
  - PAIN IN JAW [None]
